FAERS Safety Report 7791101-9 (Version None)
Quarter: 2011Q4

REPORT INFORMATION
  Report Type: 
  Country: None (occurrence: None)
  Receive Date: 20111003
  Receipt Date: 20110928
  Transmission Date: 20120403
  Serious: No
  Sender: FDA-Public Use
  Company Number: US-BIOGENIDEC-2011BI027953

PATIENT
  Age: 46 Year
  Sex: Female

DRUGS (1)
  1. TYSABRI [Suspect]
     Indication: MULTIPLE SCLEROSIS
     Route: 042
     Dates: start: 20110210

REACTIONS (13)
  - INJURY [None]
  - LACERATION [None]
  - PARAESTHESIA [None]
  - HYPOAESTHESIA [None]
  - BALANCE DISORDER [None]
  - NAUSEA [None]
  - THERMAL BURN [None]
  - FATIGUE [None]
  - VISION BLURRED [None]
  - SOMNOLENCE [None]
  - DRUG INEFFECTIVE [None]
  - HEADACHE [None]
  - BURNS SECOND DEGREE [None]
